FAERS Safety Report 5066498-3 (Version None)
Quarter: 2006Q3

REPORT INFORMATION
  Report Type: 
  Country: None (occurrence: None)
  Receive Date: 20060801
  Receipt Date: 20060720
  Transmission Date: 20061208
  Serious: Yes (Death, Hospitalization)
  Sender: FDA-Public Use
  Company Number: BE-BRISTOL-MYERS SQUIBB COMPANY-13458591

PATIENT
  Age: 80 Year
  Sex: Female

DRUGS (10)
  1. GLUCOVANCE [Suspect]
     Indication: DIABETES MELLITUS NON-INSULIN-DEPENDENT
     Route: 048
  2. APROVEL [Concomitant]
  3. EMCONCOR [Concomitant]
  4. ZOCOR [Concomitant]
  5. VASEXTEN [Concomitant]
  6. SINTROM [Concomitant]
  7. LASIX [Concomitant]
  8. EUTHYROX [Concomitant]
  9. AMIODARONE HCL [Concomitant]
  10. LORMETAZEPAM [Concomitant]

REACTIONS (6)
  - BLOOD CREATININE INCREASED [None]
  - BLOOD GLUCOSE INCREASED [None]
  - BLOOD UREA INCREASED [None]
  - GLYCOSYLATED HAEMOGLOBIN INCREASED [None]
  - RED BLOOD CELL SEDIMENTATION RATE INCREASED [None]
  - RENAL FAILURE [None]
